FAERS Safety Report 11392928 (Version 1)
Quarter: 2015Q3

REPORT INFORMATION
  Report Type: Spontaneous
  Country: KR (occurrence: KR)
  Receive Date: 20150818
  Receipt Date: 20150818
  Transmission Date: 20151125
  Serious: Yes (Death, Life-Threatening)
  Sender: FDA-Public Use
  Company Number: KR-IKARIA-201508000258

PATIENT
  Age: 2 Day
  Sex: Female
  Weight: 3.9 kg

DRUGS (4)
  1. INOMAX [Suspect]
     Active Substance: NITRIC OXIDE
     Dosage: 80 PPM, CONTINUOUS
     Dates: start: 20150801, end: 20150805
  2. ILOPROST [Concomitant]
     Active Substance: ILOPROST
  3. OXYGEN. [Concomitant]
     Active Substance: OXYGEN
     Dosage: UNK
  4. SILDENAFIL. [Concomitant]
     Active Substance: SILDENAFIL
     Route: 048

REACTIONS (4)
  - Cardiac death [None]
  - Cardiac arrest neonatal [Recovered/Resolved]
  - Persistent foetal circulation [Fatal]
  - Off label use [None]

NARRATIVE: CASE EVENT DATE: 20150803
